FAERS Safety Report 11441106 (Version 1)
Quarter: 2015Q3

REPORT INFORMATION
  Report Type: Spontaneous
  Country: US (occurrence: None)
  Receive Date: 20150831
  Receipt Date: 20150831
  Transmission Date: 20151125
  Serious: Yes (Life-Threatening, Other)
  Sender: FDA-Public Use
  Company Number: None

PATIENT
  Age: 22 Year
  Sex: Male
  Weight: 86.18 kg

DRUGS (1)
  1. EFFEXOR [Suspect]
     Active Substance: VENLAFAXINE HYDROCHLORIDE
     Indication: DEPRESSION
     Dosage: 1 PILL X7 DAYS, ONCE DAILY TAKEN BY MOUTH?THEN 2 DAILY
     Dates: start: 20150723, end: 20150803

REACTIONS (15)
  - Nausea [None]
  - Anxiety [None]
  - Crying [None]
  - Somnambulism [None]
  - Suicide attempt [None]
  - Decreased appetite [None]
  - Feeling abnormal [None]
  - Gastroenteritis [None]
  - Hyperhidrosis [None]
  - Abnormal sleep-related event [None]
  - Pain [None]
  - Social problem [None]
  - Headache [None]
  - Agitation [None]
  - Confusional state [None]
